FAERS Safety Report 22174454 (Version 4)
Quarter: 2024Q2

REPORT INFORMATION
  Report Type: Spontaneous
  Country: US (occurrence: US)
  Receive Date: 20230405
  Receipt Date: 20240522
  Transmission Date: 20240715
  Serious: No
  Sender: FDA-Public Use
  Company Number: US-002147023-NVSC2023US077881

PATIENT
  Sex: Male

DRUGS (1)
  1. CIPROFLOXACIN\DEXAMETHASONE [Suspect]
     Active Substance: CIPROFLOXACIN\DEXAMETHASONE
     Indication: Product used for unknown indication
     Dosage: 5 DRP, BID (0.3+0.1% 7.5ML LDP US)
     Route: 065

REACTIONS (5)
  - Ear infection [Unknown]
  - Ear discomfort [Unknown]
  - Ear pain [Unknown]
  - Product packaging quantity issue [Unknown]
  - Product dose omission issue [Unknown]
